FAERS Safety Report 24356654 (Version 1)
Quarter: 2024Q3

REPORT INFORMATION
  Report Type: Spontaneous
  Country: SE (occurrence: SE)
  Receive Date: 20240924
  Receipt Date: 20240924
  Transmission Date: 20241016
  Serious: Yes (Disabling)
  Sender: MERZ
  Company Number: None

PATIENT

DRUGS (4)
  1. XEOMIN [Suspect]
     Active Substance: INCOBOTULINUMTOXINA
     Indication: Migraine
     Route: 030
     Dates: start: 2011, end: 2011
  2. XEOMIN [Suspect]
     Active Substance: INCOBOTULINUMTOXINA
     Indication: Head titubation
     Route: 030
     Dates: start: 2024, end: 2024
  3. BOTOX [Suspect]
     Active Substance: ONABOTULINUMTOXINA
     Indication: Migraine
     Route: 030
     Dates: start: 2011, end: 2011
  4. BOTOX [Suspect]
     Active Substance: ONABOTULINUMTOXINA
     Indication: Head titubation
     Route: 030
     Dates: start: 2024, end: 2024

REACTIONS (5)
  - Vocal cord paralysis [Not Recovered/Not Resolved]
  - Dyspnoea [Not Recovered/Not Resolved]
  - Dysphagia [Not Recovered/Not Resolved]
  - Overdose [Unknown]
  - Off label use [Unknown]

NARRATIVE: CASE EVENT DATE: 20110101
